FAERS Safety Report 14586883 (Version 2)
Quarter: 2018Q1

REPORT INFORMATION
  Report Type: Spontaneous
  Country: NL (occurrence: NL)
  Receive Date: 20180301
  Receipt Date: 20180307
  Transmission Date: 20180509
  Serious: No
  Sender: FDA-Public Use
  Company Number: NL-TEVA-2018-NL-861065

PATIENT
  Age: 29 Year
  Sex: Male
  Weight: 80 kg

DRUGS (4)
  1. PREDNISOLON [Concomitant]
     Active Substance: PREDNISOLONE
     Indication: RHEUMATOID ARTHRITIS
     Dosage: ONCE DAILY 1 - 30-5
     Route: 065
     Dates: start: 20150701, end: 20160901
  2. SULFASALAZINE 500 MG [Suspect]
     Active Substance: SULFASALAZINE
     Indication: RHEUMATOID ARTHRITIS
     Dosage: 2000 MILLIGRAM DAILY; TWICE DAILY 2
     Route: 065
     Dates: start: 20150701, end: 20160508
  3. OMEPRAZOL [Concomitant]
     Active Substance: OMEPRAZOLE
     Dosage: ONCE DAILY 1
     Route: 065
     Dates: start: 20150701, end: 20160901
  4. SULFASALAZINE 500 MG [Suspect]
     Active Substance: SULFASALAZINE
     Dosage: 2 DF 3 TIMES DAILY
     Route: 065
     Dates: start: 20160509, end: 20160527

REACTIONS (7)
  - Pyrexia [Recovered/Resolved]
  - Restlessness [Recovered/Resolved]
  - Headache [Recovered/Resolved]
  - Vomiting [Recovered/Resolved]
  - Tachycardia [Recovered/Resolved]
  - Malaise [Recovered/Resolved]
  - Abdominal pain upper [Recovered/Resolved]

NARRATIVE: CASE EVENT DATE: 20160526
